FAERS Safety Report 7610643-X (Version None)
Quarter: 2011Q3

REPORT INFORMATION
  Report Type: 
  Country: None (occurrence: None)
  Receive Date: 20110715
  Receipt Date: 20110707
  Transmission Date: 20111222
  Serious: Yes (Other)
  Sender: FDA-Public Use
  Company Number: CA-BAYER-2011-058885

PATIENT
  Age: 26 Year
  Sex: Female
  Weight: 53.061 kg

DRUGS (3)
  1. YASMIN [Suspect]
     Dosage: UNK
  2. FOLIC ACID [Concomitant]
  3. YASMIN [Suspect]
     Dosage: UNK

REACTIONS (4)
  - ABDOMINAL PAIN UPPER [None]
  - ALANINE AMINOTRANSFERASE INCREASED [None]
  - CHOLELITHIASIS [None]
  - ASPARTATE AMINOTRANSFERASE INCREASED [None]
